FAERS Safety Report 7937304-1 (Version None)
Quarter: 2011Q4

REPORT INFORMATION
  Report Type: 
  Country: None (occurrence: None)
  Receive Date: 20111123
  Receipt Date: 20111114
  Transmission Date: 20120403
  Serious: Yes (Hospitalization)
  Sender: FDA-Public Use
  Company Number: US-BAYER-2011-045161

PATIENT
  Sex: Female

DRUGS (10)
  1. YAZ [Suspect]
     Dosage: UNK
     Route: 048
     Dates: start: 20020101, end: 20060101
  2. YAZ [Suspect]
     Dosage: UNK
     Dates: start: 20090101
  3. YASMIN [Suspect]
     Dosage: UNK
     Dates: start: 20090101
  4. YASMIN [Suspect]
     Dosage: UNK
     Route: 048
     Dates: start: 20020101, end: 20060101
  5. METFORMIN [Concomitant]
     Indication: GASTRIC DISORDER
     Dosage: UNK
     Dates: end: 20060101
  6. YAZ [Suspect]
     Dosage: UNK
     Dates: start: 20061201, end: 20070101
  7. YASMIN [Suspect]
     Dosage: UNK
     Dates: start: 20080601, end: 20081001
  8. METRONIDAZOLE [Concomitant]
     Dosage: UNK
     Dates: start: 20050201
  9. YAZ [Suspect]
     Dosage: UNK
     Dates: start: 20080601, end: 20081001
  10. YASMIN [Suspect]
     Dosage: UNK
     Dates: start: 20061201, end: 20070101

REACTIONS (6)
  - GALLBLADDER INJURY [None]
  - GASTRIC DISORDER [None]
  - PAIN [None]
  - EMOTIONAL DISTRESS [None]
  - ANXIETY [None]
  - CHEST PAIN [None]
